FAERS Safety Report 4835474-5 (Version None)
Quarter: 2005Q4

REPORT INFORMATION
  Report Type: 
  Country: None (occurrence: None)
  Receive Date: 20051122
  Receipt Date: 20051122
  Transmission Date: 20060501
  Serious: Yes (Life-Threatening, Disabling)
  Sender: FDA-Public Use
  Company Number: None

PATIENT
  Sex: Male

DRUGS (3)
  1. BUSULFAN [Suspect]
     Indication: ACUTE MYELOID LEUKAEMIA
     Dosage: 369 MG   DAILY   IV DRIP
     Route: 041
     Dates: start: 20051014, end: 20051017
  2. FLUDARABINE [Suspect]
     Indication: ACUTE MYELOID LEUKAEMIA
     Dosage: 53 MG   DAILY   IV DRIP
     Route: 041
     Dates: start: 20051013, end: 20051017
  3. CAMPATH [Concomitant]

REACTIONS (1)
  - PNEUMONIA KLEBSIELLA [None]
